FAERS Safety Report 8156923-3 (Version None)
Quarter: 2012Q1

REPORT INFORMATION
  Report Type: 
  Country: None (occurrence: None)
  Receive Date: 20120222
  Receipt Date: 20120214
  Transmission Date: 20120608
  Serious: Yes (Hospitalization)
  Sender: FDA-Public Use
  Company Number: US-ALEXION PHARMACEUTICALS INC.-A201200276

PATIENT
  Sex: Male

DRUGS (1)
  1. SOLIRIS [Suspect]
     Indication: PAROXYSMAL NOCTURNAL HAEMOGLOBINURIA
     Dosage: 900 MG, Q2W
     Route: 042

REACTIONS (13)
  - OXYGEN SATURATION DECREASED [None]
  - HAEMATOCRIT ABNORMAL [None]
  - HYPERHIDROSIS [None]
  - COLD SWEAT [None]
  - CHILLS [None]
  - PLATELET COUNT ABNORMAL [None]
  - RED BLOOD CELL COUNT ABNORMAL [None]
  - WHITE BLOOD CELL COUNT INCREASED [None]
  - BLOOD LACTATE DEHYDROGENASE INCREASED [None]
  - HAEMOGLOBIN ABNORMAL [None]
  - PNEUMONIA PRIMARY ATYPICAL [None]
  - COUGH [None]
  - BREATH SOUNDS ABNORMAL [None]
